FAERS Safety Report 6835639-7 (Version None)
Quarter: 2010Q3

REPORT INFORMATION
  Report Type: 
  Country: None (occurrence: None)
  Receive Date: 20100712
  Receipt Date: 20100712
  Transmission Date: 20110219
  Serious: Yes (Other)
  Sender: FDA-Public Use
  Company Number: None

PATIENT
  Age: 41 Year
  Sex: Female
  Weight: 63.5036 kg

DRUGS (1)
  1. SEPTOCAINE [Suspect]
     Indication: DENTAL CARE
     Dosage: 1-3 SHOTS ONCE DENTAL
     Route: 004
     Dates: start: 20100708, end: 20100708

REACTIONS (9)
  - DIZZINESS [None]
  - DROOLING [None]
  - HEART RATE DECREASED [None]
  - HYPOAESTHESIA [None]
  - NAUSEA [None]
  - PALLOR [None]
  - PARAESTHESIA [None]
  - PULSE PRESSURE DECREASED [None]
  - SYNCOPE [None]
